FAERS Safety Report 9193633 (Version 1)
Quarter: 2013Q1

REPORT INFORMATION
  Report Type: Spontaneous
  Country: US (occurrence: US)
  Receive Date: 20130327
  Receipt Date: 20130327
  Transmission Date: 20140127
  Serious: Yes (Other)
  Sender: FDA-Public Use
  Company Number: US-TEVA-393013USA

PATIENT
  Age: 78 Year
  Sex: Female

DRUGS (1)
  1. FAMCICLOVIR [Suspect]
     Indication: HERPES ZOSTER
     Dosage: 1500 MILLIGRAM DAILY;

REACTIONS (3)
  - Vaginal haemorrhage [Not Recovered/Not Resolved]
  - Epistaxis [Recovered/Resolved]
  - Vaginal discharge [Unknown]
